FAERS Safety Report 20993593 (Version 3)
Quarter: 2022Q3

REPORT INFORMATION
  Report Type: Spontaneous
  Country: AU (occurrence: AU)
  Receive Date: 20220622
  Receipt Date: 20220715
  Transmission Date: 20221026
  Serious: Yes (Other)
  Sender: FDA-Public Use
  Company Number: AU-NAPPMUNDI-GBR-2022-0098938

PATIENT
  Age: 76 Year
  Sex: Male

DRUGS (2)
  1. NORSPAN [Suspect]
     Active Substance: BUPRENORPHINE
     Indication: Analgesic therapy
     Dosage: STRENGTH: 20 MG
     Route: 062
  2. ACETAMINOPHEN\CODEINE PHOSPHATE [Concomitant]
     Active Substance: ACETAMINOPHEN\CODEINE PHOSPHATE
     Indication: Product used for unknown indication
     Dosage: OCCASSIONALLY
     Route: 065

REACTIONS (9)
  - Prostate cancer [Unknown]
  - Product adhesion issue [Unknown]
  - Inadequate analgesia [Unknown]
  - Application site erythema [Unknown]
  - Application site rash [Unknown]
  - Application site pruritus [Unknown]
  - Application site vesicles [Unknown]
  - Application site dryness [Unknown]
  - Malaise [Not Recovered/Not Resolved]

NARRATIVE: CASE EVENT DATE: 20220420
